FAERS Safety Report 9254225 (Version 1)
Quarter: 2013Q2

REPORT INFORMATION
  Report Type: Report from Study
  Country: AR (occurrence: AR)
  Receive Date: 20130425
  Receipt Date: 20130425
  Transmission Date: 20140414
  Serious: Yes (Other)
  Sender: FDA-Public Use
  Company Number: PHHY2013AR039325

PATIENT
  Age: 66 Year
  Sex: Female

DRUGS (2)
  1. ONBREZ [Suspect]
     Indication: BRONCHOSPASM
     Dosage: UNK
     Dates: start: 2011, end: 2011
  2. ONBREZ [Suspect]
     Indication: OFF LABEL USE
     Dosage: 300 UG, QD
     Dates: start: 20130419

REACTIONS (1)
  - Chronic obstructive pulmonary disease [Recovering/Resolving]
